FAERS Safety Report 5961462-1 (Version None)
Quarter: 2008Q4

REPORT INFORMATION
  Report Type: 
  Country: None (occurrence: None)
  Receive Date: 20081121
  Receipt Date: 20081104
  Transmission Date: 20090506
  Serious: Yes (Other)
  Sender: FDA-Public Use
  Company Number: JP-BAYER-200812515BYL

PATIENT
  Age: 13 Year
  Sex: Male

DRUGS (18)
  1. KOGENATE FS [Suspect]
     Indication: HAEMOPHILIA
     Dosage: UNIT DOSE: 500 IU
     Route: 042
  2. KOGENATE FS [Suspect]
     Dosage: UNIT DOSE: 500 IU
     Route: 042
  3. KOGENATE FS [Suspect]
     Dosage: UNIT DOSE: 500 IU
     Route: 042
  4. KOGENATE FS [Suspect]
     Dosage: UNIT DOSE: 500 IU
     Route: 042
  5. KOGENATE FS [Suspect]
     Dosage: UNIT DOSE: 1000 IU
     Route: 042
  6. KOGENATE FS [Suspect]
     Dosage: UNIT DOSE: 1000 IU
     Route: 042
  7. KOGENATE FS [Suspect]
     Dosage: UNIT DOSE: 1000 IU
     Route: 042
  8. KOGENATE FS [Suspect]
     Dosage: UNIT DOSE: 1000 IU
     Route: 042
  9. KOGENATE FS [Suspect]
     Dosage: UNIT DOSE: 1000 IU
     Route: 042
  10. KOGENATE FS [Suspect]
     Dosage: UNIT DOSE: 1000 IU
     Route: 042
  11. KOGENATE FS [Suspect]
     Dosage: UNIT DOSE: 1000 IU
     Route: 042
  12. KOGENATE FS [Suspect]
     Dosage: UNIT DOSE: 1000 IU
     Route: 042
  13. KOGENATE FS [Suspect]
     Dosage: UNIT DOSE: 1000 IU
     Route: 042
  14. KOGENATE FS [Suspect]
     Dosage: UNIT DOSE: 1000 IU
     Route: 042
  15. KOGENATE FS [Suspect]
     Dosage: UNIT DOSE: 1000 IU
     Route: 042
  16. KOGENATE FS [Suspect]
     Dosage: UNIT DOSE: 1000 IU
     Route: 042
  17. KOGENATE FS [Suspect]
     Dosage: UNIT DOSE: 1000 IU
     Route: 042
  18. KOGENATE FS [Suspect]
     Dosage: UNIT DOSE: 1000 IU
     Route: 042

REACTIONS (1)
  - HEPATITIS C ANTIBODY POSITIVE [None]
